FAERS Safety Report 4389527-9 (Version None)
Quarter: 2004Q2

REPORT INFORMATION
  Report Type: 
  Country: None (occurrence: None)
  Receive Date: 20040628
  Receipt Date: 20040616
  Transmission Date: 20050107
  Serious: Yes (Other)
  Sender: FDA-Public Use
  Company Number: IE-JNJFOC-20040405911

PATIENT
  Age: 73 Year
  Sex: Male

DRUGS (8)
  1. RISPERDAL [Suspect]
     Indication: SCHIZOPHRENIA
     Dosage: SEE IMAGE
     Route: 048
  2. SINEMET [Suspect]
     Indication: DRUG USE FOR UNKNOWN INDICATION
     Dosage: SEE IMAGE
     Route: 048
  3. LITHIUM CARBONATE [Suspect]
     Indication: DRUG USE FOR UNKNOWN INDICATION
     Dosage: 3600 MG, ORAL
     Route: 048
  4. ASASANTIN (ASASANTIN) [Concomitant]
  5. LIPITOR [Concomitant]
  6. MIRAPEXIN (PRAMIPEXOLE DIJYDROCHLORIDE) [Concomitant]
  7. NU-SEALS (ACETYLSALICYLIC ACID) [Concomitant]
  8. FLURAZEPAM [Concomitant]

REACTIONS (2)
  - DRUG INTERACTION [None]
  - DRUG LEVEL INCREASED [None]
